FAERS Safety Report 4769020-1 (Version None)
Quarter: 2005Q3

REPORT INFORMATION
  Report Type: 
  Country: None (occurrence: None)
  Receive Date: 20050906
  Receipt Date: 20050509
  Transmission Date: 20060218
  Serious: No
  Sender: FDA-Public Use
  Company Number: 2005-BP-07163BP

PATIENT
  Age: 77 Year
  Sex: Male

DRUGS (18)
  1. SPIRIVA [Suspect]
     Indication: ASBESTOSIS
     Dosage: 18 MCG (18 MCG,QD),IH
     Dates: start: 20050421
  2. . [Concomitant]
  3. SALMETEROL (SALMETEROL) [Suspect]
     Indication: CHRONIC OBSTRUCTIVE PULMONARY DISEASE
     Dosage: 50 MCG
  4. DIGOXIN [Concomitant]
  5. LISINOPRIL [Concomitant]
  6. METOPROLOL TARTRATE [Concomitant]
  7. GLIPIZIDE [Concomitant]
  8. ACIPHEX [Concomitant]
  9. OXYCODONE HCL [Concomitant]
  10. PLAVIX [Concomitant]
  11. LASIX [Concomitant]
  12. ZOCOR [Concomitant]
  13. TESTOSTERONE [Concomitant]
  14. DURAGESIC-100 [Concomitant]
  15. OXYGEN (OXYGEN) [Concomitant]
  16. METAMUCIL (PLANTAGO OVATA) [Concomitant]
  17. STOOL SOFTENER (DOCUSATE SODIUM) [Concomitant]
  18. CENTRUM VITAMINS (CENTRUM) [Concomitant]

REACTIONS (2)
  - INSOMNIA [None]
  - SLEEP TALKING [None]
